FAERS Safety Report 15984083 (Version 1)
Quarter: 2019Q1

REPORT INFORMATION
  Report Type: Spontaneous
  Country: ES (occurrence: ES)
  Receive Date: 20190219
  Receipt Date: 20190219
  Transmission Date: 20190418
  Serious: Yes (Hospitalization)
  Sender: FDA-Public Use
  Company Number: ES-MYLANLABS-2019M1015536

PATIENT
  Age: 14 Year
  Sex: Female

DRUGS (6)
  1. RISPERIDONE. [Suspect]
     Active Substance: RISPERIDONE
     Indication: EATING DISORDER
     Dosage: DOSAGE FORM: UNSPECIFIED
     Route: 065
  2. LEXATIN                            /00424801/ [Suspect]
     Active Substance: BROMAZEPAM
     Indication: ABNORMAL BEHAVIOUR
     Dosage: DOSAGE FORM: UNSPECIFIED
     Route: 065
  3. AREMIS (SERTRALINE HYDROCHLORIDE) [Suspect]
     Active Substance: SERTRALINE HYDROCHLORIDE
     Indication: ABNORMAL BEHAVIOUR
  4. RISPERIDONE. [Suspect]
     Active Substance: RISPERIDONE
     Indication: ABNORMAL BEHAVIOUR
  5. AREMIS (SERTRALINE HYDROCHLORIDE) [Suspect]
     Active Substance: SERTRALINE HYDROCHLORIDE
     Indication: EATING DISORDER
     Dosage: DOSAGE FORM: UNSPECIFIED
     Route: 065
  6. LEXATIN                            /00424801/ [Suspect]
     Active Substance: BROMAZEPAM
     Indication: EATING DISORDER

REACTIONS (7)
  - Aggression [Unknown]
  - Syncope [Unknown]
  - Aggression [None]
  - Treatment noncompliance [Unknown]
  - Hallucination [Unknown]
  - Tobacco user [Unknown]
  - Depression [Unknown]
